FAERS Safety Report 5395189-4 (Version None)
Quarter: 2007Q3

REPORT INFORMATION
  Report Type: 
  Country: None (occurrence: None)
  Receive Date: 20070724
  Receipt Date: 20070713
  Transmission Date: 20080115
  Serious: Yes (Disabling)
  Sender: FDA-Public Use
  Company Number: FR-ROCHE-498767

PATIENT
  Age: 59 Year
  Sex: Female

DRUGS (8)
  1. BONIVA [Suspect]
     Indication: OSTEOPOROSIS
     Route: 048
     Dates: start: 20070517
  2. 1 CONCOMITANT DRUG [Concomitant]
     Indication: MULTIPLE SCLEROSIS
     Dosage: DRUG NAME: CORTICOID
  3. METFORMINE [Concomitant]
     Indication: TYPE 1 DIABETES MELLITUS
  4. TRANSIPEG [Concomitant]
     Indication: CONSTIPATION
     Route: 048
     Dates: start: 20000101
  5. DAFALGAN [Concomitant]
     Indication: PAIN
     Dosage: TAKEN WHEN NEEDED.
     Route: 048
  6. POTASSIUM CHLORIDE [Concomitant]
     Indication: HYPOKALAEMIA
     Route: 048
     Dates: start: 19900101
  7. CARBOSYMAG [Concomitant]
     Indication: ABDOMINAL PAIN
     Dates: start: 20070412
  8. GLUCOPHAGE [Concomitant]
     Route: 048
     Dates: start: 19850101

REACTIONS (3)
  - MUSCLE FATIGUE [None]
  - PYREXIA [None]
  - SALIVARY HYPERSECRETION [None]
